FAERS Safety Report 4915272-4 (Version None)
Quarter: 2006Q1

REPORT INFORMATION
  Report Type: 
  Country: None (occurrence: None)
  Receive Date: 20060216
  Receipt Date: 20060216
  Transmission Date: 20060701
  Serious: Yes (Hospitalization)
  Sender: FDA-Public Use
  Company Number: None

PATIENT
  Sex: Female
  Weight: 57.6068 kg

DRUGS (1)
  1. AMOXICILLIN [Suspect]
     Indication: DENTAL DISORDER PROPHYLAXIS
     Dosage: X1 DOSE PRIOR DENTAL APPOINTMENT
     Dates: start: 20051105

REACTIONS (3)
  - FLUSHING [None]
  - PRURITUS [None]
  - RASH [None]
